FAERS Safety Report 23553908 (Version 2)
Quarter: 2024Q1

REPORT INFORMATION
  Report Type: Spontaneous
  Country: US (occurrence: US)
  Receive Date: 20240222
  Receipt Date: 20240229
  Transmission Date: 20240409
  Serious: Yes (Hospitalization, Other)
  Sender: FDA-Public Use
  Company Number: US-GLENMARK PHARMACEUTICALS-2024GMK089011

PATIENT

DRUGS (5)
  1. FLUCONAZOLE [Suspect]
     Active Substance: FLUCONAZOLE
     Indication: Candida endophthalmitis
     Dosage: 400 MILLIGRAM
     Route: 048
  2. FLUCONAZOLE [Suspect]
     Active Substance: FLUCONAZOLE
     Indication: Vitritis
     Dosage: 800 MILLIGRAM, QD
     Route: 048
  3. FLUCONAZOLE [Suspect]
     Active Substance: FLUCONAZOLE
     Indication: Candida infection
  4. FLUCONAZOLE [Suspect]
     Active Substance: FLUCONAZOLE
     Indication: Chorioretinitis
  5. VORICONAZOLE [Suspect]
     Active Substance: VORICONAZOLE
     Indication: Candida endophthalmitis
     Dosage: 2 DOSAGE FORM, QW

REACTIONS (5)
  - Chorioretinitis [Unknown]
  - Candida infection [Unknown]
  - Vitritis [Unknown]
  - Condition aggravated [Unknown]
  - Drug ineffective [Unknown]
